FAERS Safety Report 8357054-X (Version None)
Quarter: 2012Q2

REPORT INFORMATION
  Report Type: 
  Country: None (occurrence: None)
  Receive Date: 20120514
  Receipt Date: 20120508
  Transmission Date: 20120825
  Serious: Yes (Hospitalization, Other)
  Sender: FDA-Public Use
  Company Number: US-PFIZER INC-2012100093

PATIENT
  Sex: Male

DRUGS (10)
  1. METHOTREXATE SODIUM [Suspect]
     Dosage: UNK
  2. PROTONIX [Concomitant]
     Dosage: 40 MG, 1X/DAY
  3. FOLIC ACID [Concomitant]
     Dosage: 1 MG, 1X/DAY
     Route: 048
  4. ARAVA [Suspect]
     Dosage: UNK
  5. PREDNISONE [Concomitant]
     Dosage: 40 MG, 1X/DAY
  6. MULTI-VITAMINS [Concomitant]
     Dosage: UNK
  7. LEVAQUIN [Concomitant]
     Dosage: 500 MG, 1X/DAY
  8. DIFLUCAN [Concomitant]
     Dosage: 200 MG, 1X/DAY FOR FIVE DAYS
  9. CATAPRES [Suspect]
     Dosage: UNK
  10. METRONIDAZOLE [Concomitant]
     Dosage: 500 MG, Q8H FOR FIVE DAYS

REACTIONS (9)
  - RENAL FAILURE ACUTE [None]
  - PANCYTOPENIA [None]
  - LUNG INFILTRATION [None]
  - RASH [None]
  - ACUTE RESPIRATORY DISTRESS SYNDROME [None]
  - PNEUMONITIS [None]
  - RHEUMATOID ARTHRITIS [None]
  - HYPERTENSION [None]
  - MALAISE [None]
